FAERS Safety Report 9442092 (Version 1)
Quarter: 2013Q3

REPORT INFORMATION
  Report Type: Spontaneous
  Country: US (occurrence: US)
  Receive Date: 20130806
  Receipt Date: 20130806
  Transmission Date: 20140515
  Serious: Yes (Other)
  Sender: FDA-Public Use
  Company Number: US-OTSUKA-US-2013-11453

PATIENT
  Sex: Female

DRUGS (2)
  1. ABILIFY MAINTENA [Suspect]
     Indication: SCHIZOPHRENIA
     Dosage: 400 MG MILLIGRAM(S), QM
     Route: 030
     Dates: start: 201306
  2. ABILIFY MAINTENA [Suspect]
     Dosage: 400 MG MILLIGRAM(S), QM
     Dates: start: 20130724

REACTIONS (4)
  - Systemic lupus erythematosus [None]
  - Pain [Unknown]
  - Fatigue [Unknown]
  - Sensation of heaviness [Unknown]
